FAERS Safety Report 18867166 (Version 2)
Quarter: 2021Q1

REPORT INFORMATION
  Report Type: Spontaneous
  Country: ES (occurrence: ES)
  Receive Date: 20210209
  Receipt Date: 20210224
  Transmission Date: 20210420
  Serious: Yes (Hospitalization)
  Sender: FDA-Public Use
  Company Number: ES-VERTEX PHARMACEUTICALS-2021-001800

PATIENT
  Age: 13 Year
  Sex: Female

DRUGS (10)
  1. PROMIXIN [COLISTIMETHATE SODIUM] [Concomitant]
     Active Substance: COLISTIMETHATE SODIUM
     Dosage: 1000000 UNITS EACH 12 HOURS A DAY IN INEB SPRAY
  2. SYMKEVI [Suspect]
     Active Substance: IVACAFTOR\TEZACAFTOR
     Indication: CYSTIC FIBROSIS
     Dosage: 1 DOSAGE FORM (100/150 MG), ONCE IN MORNING
     Route: 048
     Dates: start: 202003
  3. PRODEFEN [Concomitant]
     Dosage: 2 GRAM (1 SACHET A DAY FOR 3 WEEKS)
  4. ENOXAPARIN [Concomitant]
     Active Substance: ENOXAPARIN
     Indication: JUGULAR VEIN THROMBOSIS
     Dosage: 20 MG, BID
     Route: 058
  5. KALYDECO [Suspect]
     Active Substance: IVACAFTOR
     Indication: CYSTIC FIBROSIS
     Dosage: 150 MG, ONCE IN NIGHT
     Route: 048
     Dates: start: 202003
  6. KREON [Concomitant]
     Active Substance: PANCRELIPASE
     Dosage: 7164 U/KG/DAY AND 1791 U/KG/MEAL
  7. VIADEKAL [Concomitant]
     Dosage: CAPSULE
  8. AZITHROMYCIN ANHYDROUS. [Concomitant]
     Active Substance: AZITHROMYCIN ANHYDROUS
     Dosage: 500 MG, QD ON MONDAY, TUESDAY, FRIDAY
  9. SALBUTAMOL [Concomitant]
     Active Substance: ALBUTEROL
     Dosage: MUCONEB 6% VIAL OF 4 ML, 1 VIAL EACH 8 HOURS, PREMEDICATED WITH SALBUTAMOL
  10. PULMOZYME [Concomitant]
     Active Substance: DORNASE ALFA
     Dosage: 2.5 MG VIAL, QD WITH EFLOWRAPID MOUTHPEICE

REACTIONS (2)
  - Infective pulmonary exacerbation of cystic fibrosis [Recovered/Resolved]
  - Pulmonary function test decreased [Recovering/Resolving]

NARRATIVE: CASE EVENT DATE: 20200908
